FAERS Safety Report 8465601-2 (Version None)
Quarter: 2012Q2

REPORT INFORMATION
  Report Type: 
  Country: None (occurrence: None)
  Receive Date: 20120626
  Receipt Date: 20120618
  Transmission Date: 20120825
  Serious: Yes (Hospitalization)
  Sender: FDA-Public Use
  Company Number: US-BAYER-2012-061871

PATIENT
  Age: 33 Year
  Sex: Female

DRUGS (9)
  1. ALPRAZOLAM [Concomitant]
  2. YAZ [Suspect]
     Indication: HORMONE REPLACEMENT THERAPY
  3. PROMETHAZINE [Concomitant]
     Dosage: 25 MG, UNK
  4. RESPA-PE [Concomitant]
  5. XANAX [Concomitant]
     Dosage: 1 MG, UNK
  6. HYDROCODONE BITARTRATE AND ACETAMINOPHEN [Concomitant]
     Dosage: 7.5-500 MG
  7. BENZONATATE [Concomitant]
     Dosage: 100 MG, UNK
  8. CEFUROXIME [Concomitant]
     Dosage: 250 MG, UNK
  9. FLUCONAZOLE [Concomitant]
     Dosage: 150 MG, UNK

REACTIONS (1)
  - DEEP VEIN THROMBOSIS [None]
